FAERS Safety Report 4463481-3 (Version None)
Quarter: 2004Q3

REPORT INFORMATION
  Report Type: 
  Country: None (occurrence: None)
  Receive Date: 20040928
  Receipt Date: 20040913
  Transmission Date: 20050211
  Serious: Yes (Other)
  Sender: FDA-Public Use
  Company Number: S04-IRL-03671-01

PATIENT
  Age: 46 Year
  Sex: Female
  Weight: 70 kg

DRUGS (2)
  1. LEXAPRO [Suspect]
     Indication: DEPRESSION
     Dosage: 10 MG QD PO
     Route: 048
     Dates: start: 20040629, end: 20040801
  2. LENTIZOL (AMITRIPTYLINE HYDROCHLORIDE) [Concomitant]

REACTIONS (2)
  - ANAEMIA [None]
  - MENORRHAGIA [None]
